FAERS Safety Report 21709108 (Version 4)
Quarter: 2023Q1

REPORT INFORMATION
  Report Type: Report from Study
  Country: US (occurrence: US)
  Receive Date: 20221210
  Receipt Date: 20230120
  Transmission Date: 20230418
  Serious: Yes (Hospitalization, Other)
  Sender: FDA-Public Use
  Company Number: US-TAKEDA-2022TUS088574

PATIENT
  Age: 1 Year
  Sex: Female

DRUGS (20)
  1. TEDUGLUTIDE [Suspect]
     Active Substance: TEDUGLUTIDE
     Indication: Short-bowel syndrome
     Dosage: 0.054 MILLILITER, QD
     Route: 058
     Dates: start: 202205
  2. TEDUGLUTIDE [Suspect]
     Active Substance: TEDUGLUTIDE
     Indication: Short-bowel syndrome
     Dosage: 0.054 MILLILITER, QD
     Route: 058
     Dates: start: 202205
  3. TEDUGLUTIDE [Suspect]
     Active Substance: TEDUGLUTIDE
     Indication: Short-bowel syndrome
     Dosage: 0.054 MILLILITER, QD
     Route: 058
     Dates: start: 202205
  4. TEDUGLUTIDE [Suspect]
     Active Substance: TEDUGLUTIDE
     Indication: Short-bowel syndrome
     Dosage: 0.054 MILLILITER, QD
     Route: 058
     Dates: start: 202205
  5. TEDUGLUTIDE [Suspect]
     Active Substance: TEDUGLUTIDE
     Indication: Malabsorption
     Dosage: 0.054 MILLILITER, QD
     Route: 058
     Dates: start: 202211
  6. TEDUGLUTIDE [Suspect]
     Active Substance: TEDUGLUTIDE
     Indication: Malabsorption
     Dosage: 0.054 MILLILITER, QD
     Route: 058
     Dates: start: 202211
  7. TEDUGLUTIDE [Suspect]
     Active Substance: TEDUGLUTIDE
     Indication: Malabsorption
     Dosage: 0.054 MILLILITER, QD
     Route: 058
     Dates: start: 202211
  8. TEDUGLUTIDE [Suspect]
     Active Substance: TEDUGLUTIDE
     Indication: Malabsorption
     Dosage: 0.054 MILLILITER, QD
     Route: 058
     Dates: start: 202211
  9. TEDUGLUTIDE [Suspect]
     Active Substance: TEDUGLUTIDE
     Dosage: 0.545 MILLIGRAM, QD
     Route: 058
     Dates: start: 20221109
  10. TEDUGLUTIDE [Suspect]
     Active Substance: TEDUGLUTIDE
     Dosage: 0.545 MILLIGRAM, QD
     Route: 058
     Dates: start: 20221109
  11. TEDUGLUTIDE [Suspect]
     Active Substance: TEDUGLUTIDE
     Dosage: 0.545 MILLIGRAM, QD
     Route: 058
     Dates: start: 20221109
  12. TEDUGLUTIDE [Suspect]
     Active Substance: TEDUGLUTIDE
     Dosage: 0.545 MILLIGRAM, QD
     Route: 058
     Dates: start: 20221109
  13. TEDUGLUTIDE [Suspect]
     Active Substance: TEDUGLUTIDE
     Dosage: 0.054 MILLILITER, QD
     Route: 058
     Dates: start: 20221111
  14. TEDUGLUTIDE [Suspect]
     Active Substance: TEDUGLUTIDE
     Dosage: 0.054 MILLILITER, QD
     Route: 058
     Dates: start: 20221111
  15. TEDUGLUTIDE [Suspect]
     Active Substance: TEDUGLUTIDE
     Dosage: 0.054 MILLILITER, QD
     Route: 058
     Dates: start: 20221111
  16. TEDUGLUTIDE [Suspect]
     Active Substance: TEDUGLUTIDE
     Dosage: 0.054 MILLILITER, QD
     Route: 058
     Dates: start: 20221111
  17. TEDUGLUTIDE [Suspect]
     Active Substance: TEDUGLUTIDE
     Dosage: 0.545 MILLIGRAM, QD
     Route: 058
     Dates: start: 20221111
  18. TEDUGLUTIDE [Suspect]
     Active Substance: TEDUGLUTIDE
     Dosage: 0.545 MILLIGRAM, QD
     Route: 058
     Dates: start: 20221111
  19. TEDUGLUTIDE [Suspect]
     Active Substance: TEDUGLUTIDE
     Dosage: 0.545 MILLIGRAM, QD
     Route: 058
     Dates: start: 20221111
  20. TEDUGLUTIDE [Suspect]
     Active Substance: TEDUGLUTIDE
     Dosage: 0.545 MILLIGRAM, QD
     Route: 058
     Dates: start: 20221111

REACTIONS (8)
  - Device related sepsis [Unknown]
  - Complication associated with device [Unknown]
  - Influenza [Unknown]
  - Diarrhoea [Unknown]
  - Flatulence [Unknown]
  - Abdominal distension [Unknown]
  - Vomiting [Recovered/Resolved]
  - Product dose omission issue [Unknown]

NARRATIVE: CASE EVENT DATE: 20221127
